FAERS Safety Report 7939646-2 (Version None)
Quarter: 2011Q4

REPORT INFORMATION
  Report Type: 
  Country: None (occurrence: None)
  Receive Date: 20111125
  Receipt Date: 20111113
  Transmission Date: 20120403
  Serious: Yes (Other)
  Sender: FDA-Public Use
  Company Number: PHHY2011IT100018

PATIENT
  Age: 30 Year
  Sex: Female

DRUGS (2)
  1. PREDNISONE TAB [Concomitant]
  2. CYCLOSPORINE [Suspect]
     Indication: LIVER TRANSPLANT

REACTIONS (16)
  - FUNGAEMIA [None]
  - SKIN OEDEMA [None]
  - FUNGAL SKIN INFECTION [None]
  - CHOLESTASIS [None]
  - PAIN IN EXTREMITY [None]
  - SKIN LESION [None]
  - RENAL IMPAIRMENT [None]
  - PAPULE [None]
  - FUSARIUM INFECTION [None]
  - PYREXIA [None]
  - SKIN ULCER [None]
  - SKIN NECROSIS [None]
  - BLOOD BILIRUBIN INCREASED [None]
  - ERYTHEMA [None]
  - SKIN SWELLING [None]
  - HEPATIC ENZYME INCREASED [None]
